FAERS Safety Report 8730326 (Version 2)
Quarter: 2012Q4

REPORT INFORMATION
  Report Type: 
  Country: JP (occurrence: JP)
  Receive Date: 20120817
  Receipt Date: 20120830
  Transmission Date: 20130627
  Serious: Yes (Other)
  Sender: FDA-Public Use
  Company Number: JP-PFIZER INC-2012197598

PATIENT
  Age: 37 Year
  Sex: Male

DRUGS (3)
  1. LYRICA [Suspect]
     Indication: NEURALGIA
     Dosage: 150 mg daily
     Route: 048
     Dates: start: 201012
  2. LYRICA [Suspect]
     Dosage: 450 mg daily
     Route: 048
  3. LYRICA [Suspect]
     Dosage: 300 mg daily
     Route: 048

REACTIONS (2)
  - Diplopia [Recovered/Resolved]
  - Mydriasis [Recovered/Resolved]
